FAERS Safety Report 5621569-5 (Version None)
Quarter: 2008Q1

REPORT INFORMATION
  Report Type: 
  Country: None (occurrence: None)
  Receive Date: 20080206
  Receipt Date: 20080124
  Transmission Date: 20080703
  Serious: Yes (Other)
  Sender: FDA-Public Use
  Company Number: 8028290

PATIENT
  Age: 35 Year
  Sex: Female
  Weight: 73.64 kg

DRUGS (7)
  1. KEPPRA [Suspect]
     Indication: EPILEPSY
     Dosage: 1500 MG 2/D PO
     Route: 048
  2. KEPPRA [Suspect]
     Indication: GRAND MAL CONVULSION
     Dosage: 1500 MG 2/D PO
     Route: 048
  3. TOPAMAX [Concomitant]
  4. VITAMIN TAB [Concomitant]
  5. FOLIC ACID [Concomitant]
  6. CARTINE [Concomitant]
  7. .. [Concomitant]

REACTIONS (5)
  - ABORTION SPONTANEOUS [None]
  - DEPRESSION [None]
  - DRUG EXPOSURE BEFORE PREGNANCY [None]
  - PREGNANCY [None]
  - SPEECH DISORDER [None]
